FAERS Safety Report 14267991 (Version 2)
Quarter: 2017Q4

REPORT INFORMATION
  Report Type: Spontaneous
  Country: US (occurrence: US)
  Receive Date: 20171211
  Receipt Date: 20171213
  Transmission Date: 20180321
  Serious: Yes (Hospitalization)
  Sender: FDA-Public Use
  Company Number: US-ROCHE-2032587

PATIENT
  Sex: Female

DRUGS (19)
  1. ALENDRONATE SODIUM. [Concomitant]
     Active Substance: ALENDRONATE SODIUM
  2. ESBRIET [Suspect]
     Active Substance: PIRFENIDONE
     Dosage: 3- 267 MG TABLETS,TID
     Route: 048
  3. AMLODIPINE BESYLATE. [Concomitant]
     Active Substance: AMLODIPINE BESYLATE
  4. FLUTICASONE PROPIONATE. [Concomitant]
     Active Substance: FLUTICASONE PROPIONATE
  5. LEVOTHYROXINE SODIUM. [Concomitant]
     Active Substance: LEVOTHYROXINE SODIUM
  6. TRIAMTERENE AND HYDROCHLOROTHIAZIDE [Concomitant]
     Active Substance: HYDROCHLOROTHIAZIDE\TRIAMTERENE
  7. CLINDAMYCIN HCL [Concomitant]
     Active Substance: CLINDAMYCIN HYDROCHLORIDE
  8. MONTELUKAST SODIUM. [Concomitant]
     Active Substance: MONTELUKAST SODIUM
  9. BENZONATATE. [Concomitant]
     Active Substance: BENZONATATE
  10. PREDNISONE. [Concomitant]
     Active Substance: PREDNISONE
  11. ESBRIET [Suspect]
     Active Substance: PIRFENIDONE
     Indication: IDIOPATHIC PULMONARY FIBROSIS
     Dosage: 1- 267 MG TABLET,TID FOR 1 WEEK
     Route: 048
     Dates: start: 20171031
  12. ESBRIET [Suspect]
     Active Substance: PIRFENIDONE
     Dosage: BY MOUTH WITH FOOD
     Route: 048
     Dates: start: 201711
  13. LOSARTAN POTASSIUM. [Concomitant]
     Active Substance: LOSARTAN POTASSIUM
  14. MUCINEX [Concomitant]
     Active Substance: GUAIFENESIN
  15. RANITIDINE HCL [Concomitant]
     Active Substance: RANITIDINE HYDROCHLORIDE
  16. ESBRIET [Suspect]
     Active Substance: PIRFENIDONE
     Dosage: 2- 267 MG TABLETS,TID FOR 1 WEEK
     Route: 048
  17. ALBUTEROL SULFATE. [Concomitant]
     Active Substance: ALBUTEROL SULFATE
  18. LEVOFLOXACINE [Concomitant]
     Active Substance: LEVOFLOXACIN
  19. VIRTUSSIN AC [Concomitant]
     Active Substance: CODEINE PHOSPHATE\GUAIFENESIN

REACTIONS (6)
  - Gastrointestinal disorder [Not Recovered/Not Resolved]
  - Cough [Not Recovered/Not Resolved]
  - Hypertension [Not Recovered/Not Resolved]
  - Fatigue [Not Recovered/Not Resolved]
  - Constipation [Not Recovered/Not Resolved]
  - Haemorrhoids [Not Recovered/Not Resolved]
